FAERS Safety Report 9997754 (Version 1)
Quarter: 2014Q1

REPORT INFORMATION
  Report Type: Spontaneous
  Country: US (occurrence: US)
  Receive Date: 20140311
  Receipt Date: 20140311
  Transmission Date: 20141002
  Serious: No
  Sender: FDA-Public Use
  Company Number: US-PFIZER INC-2014064691

PATIENT
  Sex: Female

DRUGS (7)
  1. GLYNASE [Suspect]
     Dosage: UNK
  2. COLESTID [Suspect]
     Dosage: UNK
  3. CODEINE PHOSPHATE [Suspect]
     Dosage: UNK
  4. LANTUS [Suspect]
     Dosage: UNK
  5. VYTORIN [Suspect]
     Dosage: UNK
  6. NOVOLOG [Suspect]
     Dosage: UNK
  7. TRADJENTA [Suspect]
     Dosage: UNK

REACTIONS (1)
  - Drug hypersensitivity [Unknown]
